FAERS Safety Report 6659991-0 (Version None)
Quarter: 2010Q1

REPORT INFORMATION
  Report Type: 
  Country: None (occurrence: None)
  Receive Date: 20100331
  Receipt Date: 20100323
  Transmission Date: 20100710
  Serious: Yes (Death, Hospitalization)
  Sender: FDA-Public Use
  Company Number: US-BIOGENIDEC-2009BI038871

PATIENT
  Age: 58 Year
  Sex: Female
  Weight: 81 kg

DRUGS (1)
  1. AVONEX [Suspect]
     Indication: MULTIPLE SCLEROSIS
     Route: 030
     Dates: start: 20060511, end: 20091109

REACTIONS (10)
  - APHASIA [None]
  - CONVULSION [None]
  - DECUBITUS ULCER [None]
  - DEHYDRATION [None]
  - FAILURE TO THRIVE [None]
  - HYPOPHAGIA [None]
  - PYREXIA [None]
  - RENAL FAILURE [None]
  - TREMOR [None]
  - URINARY TRACT INFECTION [None]
